FAERS Safety Report 7204279-2 (Version None)
Quarter: 2010Q4

REPORT INFORMATION
  Report Type: 
  Country: None (occurrence: None)
  Receive Date: 20101230
  Receipt Date: 20101220
  Transmission Date: 20110411
  Serious: Yes (Other)
  Sender: FDA-Public Use
  Company Number: US-BAYER-2010-008337

PATIENT
  Sex: Female

DRUGS (2)
  1. YAZ [Suspect]
     Dosage: UNK
     Dates: start: 20010101, end: 20031201
  2. YASMIN [Suspect]
     Dosage: UNK
     Dates: start: 20010101, end: 20031201

REACTIONS (1)
  - POSTURAL ORTHOSTATIC TACHYCARDIA SYNDROME [None]
